FAERS Safety Report 6545438-1 (Version None)
Quarter: 2010Q1

REPORT INFORMATION
  Report Type: 
  Country: None (occurrence: None)
  Receive Date: 20100121
  Receipt Date: 20100113
  Transmission Date: 20100710
  Serious: Yes (Other)
  Sender: FDA-Public Use
  Company Number: CA-PFIZER INC-2010006439

PATIENT
  Age: 69 Year
  Sex: Male

DRUGS (6)
  1. LYRICA [Suspect]
     Indication: BURNING SENSATION
     Dosage: 50 MG, 3X/DAY
     Dates: start: 20091001, end: 20091001
  2. NORTRIPTYLINE [Concomitant]
     Indication: BURNING SENSATION
     Dosage: UNK
  3. NORVASC [Concomitant]
     Dosage: 5 MG, UNK
  4. RAMIPRIL [Concomitant]
     Dosage: 10 MG, UNK
  5. HYDROCHLOROTHIAZIDE [Concomitant]
     Dosage: 25 MG, UNK
  6. ASPIRIN [Concomitant]
     Dosage: UNK

REACTIONS (1)
  - MONOPLEGIA [None]
